FAERS Safety Report 7952586-8 (Version None)
Quarter: 2011Q4

REPORT INFORMATION
  Report Type: 
  Country: None (occurrence: None)
  Receive Date: 20111201
  Receipt Date: 20111128
  Transmission Date: 20120403
  Serious: Yes (Other)
  Sender: FDA-Public Use
  Company Number: US-PFIZER INC-2011290921

PATIENT
  Sex: Female

DRUGS (4)
  1. CHLORZOXAZONE [Suspect]
     Dosage: 500 MG, EVERY 6 HOURS
  2. ALPRAZOLAM [Suspect]
  3. TYLENOL W/ CODEINE NO. 4 [Suspect]
     Dosage: 1 DF, EVERY 8 HOURS
  4. DIAPEZAM [Suspect]
     Dosage: UNK

REACTIONS (2)
  - SOMNOLENCE [None]
  - DRUG DEPENDENCE [None]
